FAERS Safety Report 9024507 (Version 1)
Quarter: 2013Q1

REPORT INFORMATION
  Report Type: Spontaneous
  Country: JP (occurrence: None)
  Receive Date: 20130104
  Receipt Date: 20130104
  Transmission Date: 20140127
  Serious: Yes (Death)
  Sender: FDA-Public Use
  Company Number: 2013SP000026

PATIENT
  Age: 31 Year
  Sex: Female

DRUGS (6)
  1. IFOSFAMIDE [Suspect]
     Indication: CHEMOTHERAPY
     Dosage: 2500 MG/M**2
  2. PACLITAXEL [Suspect]
     Indication: METASTASES TO BONE
     Dosage: 80 MG/M**2;QW;
  3. DOXORUBICIN [Suspect]
     Indication: CHEMOTHERAPY
     Dosage: 20 MG/M**2
  4. DOCETAXEL [Suspect]
     Indication: CHEMOTHERAPY
  5. MESNA [Suspect]
     Indication: CHEMOTHERAPY
     Dosage: 1200 MG/M**2;
  6. DACARBAZINE [Suspect]
     Indication: CHEMOTHERAPY
     Dosage: 300 MG/M**2

REACTIONS (12)
  - Metastases to ovary [None]
  - Metastases to liver [None]
  - Metastases to mouth [None]
  - Breast angiosarcoma [None]
  - Malignant neoplasm progression [None]
  - Tumour pain [None]
  - Tumour haemorrhage [None]
  - Mastication disorder [None]
  - Disseminated intravascular coagulation [None]
  - Drug resistance [None]
  - Metastases to bone [None]
  - Metastases to spine [None]
